FAERS Safety Report 14145154 (Version 1)
Quarter: 2017Q4

REPORT INFORMATION
  Report Type: Spontaneous
  Country: US (occurrence: None)
  Receive Date: 20171030
  Receipt Date: 20171030
  Transmission Date: 20180321
  Serious: No
  Sender: FDA-Public Use
  Company Number: None

PATIENT
  Age: 36 Year
  Sex: Male

DRUGS (1)
  1. ZEPATIER [Suspect]
     Active Substance: ELBASVIR\GRAZOPREVIR
     Dosage: 50,G-100MG TABLET QD PO
     Route: 048

REACTIONS (2)
  - Pneumonia [None]
  - Haematemesis [None]

NARRATIVE: CASE EVENT DATE: 20171019
